FAERS Safety Report 19211958 (Version 7)
Quarter: 2021Q3

REPORT INFORMATION
  Report Type: Spontaneous
  Country: JP (occurrence: JP)
  Receive Date: 20210504
  Receipt Date: 20210929
  Transmission Date: 20211014
  Serious: Yes (Life-Threatening, Hospitalization, Other)
  Sender: FDA-Public Use
  Company Number: JP-GLAXOSMITHKLINE-JP2021JPN089190

PATIENT
  Age: 5 Decade
  Sex: Female

DRUGS (8)
  1. COMIRNATY [Suspect]
     Active Substance: TOZINAMERAN
     Indication: COVID-19 PROPHYLAXIS
     Dosage: 0.3 MG, SINGLE
     Route: 030
     Dates: start: 20210405, end: 20210405
  2. NEXIUM [Concomitant]
     Active Substance: ESOMEPRAZOLE MAGNESIUM
     Dosage: UNK
  3. MONTELUKAST SODIUM. [Concomitant]
     Active Substance: MONTELUKAST SODIUM
     Indication: ASTHMA
     Dosage: UNK
  4. SYMBICORT [Concomitant]
     Active Substance: BUDESONIDE\FORMOTEROL FUMARATE DIHYDRATE
     Indication: ASTHMA
     Dosage: UNK
  5. MEPTIN [Concomitant]
     Active Substance: PROCATEROL HYDROCHLORIDE
     Indication: ASTHMA
     Dosage: UNK
  6. BOSMIN [Concomitant]
     Active Substance: EPINEPHRINE
     Indication: ASTHMA
     Route: 055
  7. MEPOLIZUMAB [Suspect]
     Active Substance: MEPOLIZUMAB
     Indication: ASTHMA
     Dosage: 100 MG
     Route: 058
     Dates: start: 20210317
  8. ENERZAIR [Concomitant]
     Active Substance: GLYCOPYRROLATE\INDACATEROL\MOMETASONE FUROATE
     Indication: ASTHMA
     Dosage: HIGH DOSE
     Route: 055
     Dates: start: 20210317, end: 20210405

REACTIONS (22)
  - Vomiting [Recovered/Resolved]
  - Wheezing [Recovered/Resolved]
  - Multiple chemical sensitivity [Recovering/Resolving]
  - Dyspnoea [Not Recovered/Not Resolved]
  - Asthma [Recovering/Resolving]
  - Dyspnoea exertional [Recovering/Resolving]
  - Stridor [Recovered/Resolved]
  - Chills [Recovered/Resolved]
  - Bronchospasm [Recovering/Resolving]
  - Nausea [Recovered/Resolved]
  - Muscular weakness [Recovering/Resolving]
  - Sense of oppression [Recovered/Resolved]
  - Urticaria [Recovered/Resolved]
  - Gait disturbance [Recovering/Resolving]
  - Pruritus [Recovered/Resolved]
  - Tachypnoea [Recovered/Resolved]
  - Abdominal pain [Recovered/Resolved]
  - Pyrexia [Recovering/Resolving]
  - Anaphylactic reaction [Recovering/Resolving]
  - Blood pressure decreased [Recovered/Resolved]
  - Erythema [Not Recovered/Not Resolved]
  - Choking sensation [Recovering/Resolving]

NARRATIVE: CASE EVENT DATE: 20210317
